FAERS Safety Report 5814025-2 (Version None)
Quarter: 2008Q3

REPORT INFORMATION
  Report Type: 
  Country: None (occurrence: None)
  Receive Date: 20080717
  Receipt Date: 20080709
  Transmission Date: 20090109
  Serious: Yes (Hospitalization)
  Sender: FDA-Public Use
  Company Number: US-GENENTECH-264245

PATIENT
  Sex: Male
  Weight: 89 kg

DRUGS (10)
  1. BEVACIZUMAB [Suspect]
     Indication: GLIOBLASTOMA
     Dosage: 15 MG/KG, Q3W
     Route: 042
     Dates: start: 20080616
  2. BORTEZOMIB [Suspect]
     Indication: GLIOBLASTOMA
     Dosage: 2.5 MG/KG, UNK
     Route: 042
     Dates: start: 20080616
  3. OMNICEF [Concomitant]
     Indication: DRUG USE FOR UNKNOWN INDICATION
     Dosage: 600 MG, QD
  4. MS CONTIN [Concomitant]
     Indication: PAIN
  5. VICODIN [Concomitant]
     Indication: PAIN
  6. DILANTIN [Concomitant]
     Indication: DRUG USE FOR UNKNOWN INDICATION
     Dosage: 300 MG, QD
  7. DECADRON [Concomitant]
     Indication: DRUG USE FOR UNKNOWN INDICATION
     Dosage: 2 MG, QD
     Route: 048
  8. ZESTRIL [Concomitant]
     Indication: DRUG USE FOR UNKNOWN INDICATION
     Dosage: 20 MG, QD
  9. NEXIUM [Concomitant]
     Indication: DRUG USE FOR UNKNOWN INDICATION
     Dosage: 40 MG, QD
  10. K-DUR [Concomitant]
     Indication: DRUG USE FOR UNKNOWN INDICATION
     Dosage: 40 MEQ, QD

REACTIONS (4)
  - CONVULSION [None]
  - NAUSEA [None]
  - PYREXIA [None]
  - SPINAL FRACTURE [None]
